FAERS Safety Report 24915206 (Version 1)
Quarter: 2025Q1

REPORT INFORMATION
  Report Type: Spontaneous
  Country: RU (occurrence: RU)
  Receive Date: 20250203
  Receipt Date: 20250203
  Transmission Date: 20250409
  Serious: Yes (Hospitalization)
  Sender: JOHNSON AND JOHNSON
  Company Number: RU-JNJFOC-20250133325

PATIENT
  Age: 40 Year
  Sex: Female

DRUGS (8)
  1. BOSENTAN [Suspect]
     Active Substance: BOSENTAN
     Indication: Pulmonary arterial hypertension
     Route: 048
  2. BOSENTAN [Suspect]
     Active Substance: BOSENTAN
     Route: 048
  3. SELEXIPAG [Suspect]
     Active Substance: SELEXIPAG
     Indication: Pulmonary arterial hypertension
     Route: 048
  4. SELEXIPAG [Suspect]
     Active Substance: SELEXIPAG
     Route: 048
  5. SILDENAFIL [Suspect]
     Active Substance: SILDENAFIL
     Route: 065
  6. SILDENAFIL [Suspect]
     Active Substance: SILDENAFIL
     Route: 065
  7. RIOCIGUAT [Suspect]
     Active Substance: RIOCIGUAT
     Indication: Pulmonary arterial hypertension
  8. RIOCIGUAT [Suspect]
     Active Substance: RIOCIGUAT

REACTIONS (1)
  - Cardiac failure [Unknown]

NARRATIVE: CASE EVENT DATE: 20210801
